FAERS Safety Report 23410457 (Version 1)
Quarter: 2024Q1

REPORT INFORMATION
  Report Type: Spontaneous
  Country: US (occurrence: US)
  Receive Date: 20240117
  Receipt Date: 20240117
  Transmission Date: 20240409
  Serious: No
  Sender: FDA-Public Use
  Company Number: US-PFIZER INC-202400010610

PATIENT
  Sex: Female

DRUGS (1)
  1. LORBRENA [Suspect]
     Active Substance: LORLATINIB
     Indication: Neoplasm malignant
     Dosage: UNK
     Dates: start: 20231123, end: 20231227

REACTIONS (10)
  - Menstrual disorder [Unknown]
  - Visual impairment [Unknown]
  - Auditory disorder [Unknown]
  - Emotional disorder [Unknown]
  - Feeling abnormal [Unknown]
  - Lymphadenopathy [Unknown]
  - Vision blurred [Unknown]
  - Tinnitus [Unknown]
  - COVID-19 [Unknown]
  - Therapeutic response unexpected [Unknown]
